FAERS Safety Report 13145128 (Version 2)
Quarter: 2017Q1

REPORT INFORMATION
  Report Type: Spontaneous
  Country: US (occurrence: US)
  Receive Date: 20170124
  Receipt Date: 20170224
  Transmission Date: 20170428
  Serious: Yes (Other)
  Sender: FDA-Public Use
  Company Number: US-AUROBINDO-AUR-APL-2017-16198

PATIENT
  Age: 6 Day
  Sex: Male
  Weight: 3.71 kg

DRUGS (1)
  1. HYDROMORPHONE [Suspect]
     Active Substance: HYDROMORPHONE
     Indication: ANALGESIC THERAPY
     Dosage: 4 MG, EVERY 4 HOURS
     Route: 063

REACTIONS (4)
  - Exposure during breast feeding [Unknown]
  - Toxicity to various agents [Unknown]
  - Bradycardia [Unknown]
  - Apnoeic attack [Recovered/Resolved]
